FAERS Safety Report 7284123-8 (Version None)
Quarter: 2011Q1

REPORT INFORMATION
  Report Type: 
  Country: None (occurrence: None)
  Receive Date: 20110209
  Receipt Date: 20110131
  Transmission Date: 20110831
  Serious: Yes (Other)
  Sender: FDA-Public Use
  Company Number: PHHY2011NL07500

PATIENT
  Sex: Female

DRUGS (10)
  1. OMEPRAZOLE [Concomitant]
  2. ZOMETA [Suspect]
     Dosage: 4 MG/5 ML, CONCENTRATE FOR SOLUTION FOR IV INFUSION, 1X PER 28 DAYS
     Dates: start: 20110131
  3. ZOMETA [Suspect]
     Indication: BREAST CANCER METASTATIC
     Dosage: 4 MG/5 ML, CONCENTRATE FOR SOLUTION FOR IV INFUSION, 1X PER 28 DAYS
     Dates: start: 20101011
  4. TAMOXIFEN CITRATE [Concomitant]
  5. AMITRIPTYLINE HCL [Concomitant]
  6. OXYCONTIN [Concomitant]
  7. ZOMETA [Suspect]
     Dosage: 4 MG/5 ML, CONCENTRATE FOR SOLUTION FOR IV INFUSION, 1X PER 28 DAYS
     Dates: start: 20110103
  8. DICLOFENAC SODIUM [Concomitant]
  9. VOLCOLON [Concomitant]
  10. FENTANYL [Concomitant]

REACTIONS (3)
  - BLADDER DISORDER [None]
  - SPINAL COMPRESSION FRACTURE [None]
  - URINARY RETENTION [None]
